FAERS Safety Report 7178275-8 (Version None)
Quarter: 2010Q4

REPORT INFORMATION
  Report Type: 
  Country: None (occurrence: None)
  Receive Date: 20101220
  Receipt Date: 20101214
  Transmission Date: 20110411
  Serious: Yes (Other)
  Sender: FDA-Public Use
  Company Number: GB-PFIZER INC-2010130308

PATIENT
  Age: 66 Year
  Sex: Female

DRUGS (1)
  1. XALATAN [Suspect]
     Indication: INTRAOCULAR PRESSURE INCREASED
     Dosage: UNK
     Route: 047
     Dates: start: 20100828

REACTIONS (6)
  - CONJUNCTIVITIS [None]
  - DIPLOPIA [None]
  - DRY EYE [None]
  - EYE PAIN [None]
  - NASAL DISCOMFORT [None]
  - NASAL DRYNESS [None]
